FAERS Safety Report 9513287 (Version 1)
Quarter: 2013Q1

REPORT INFORMATION
  Report Type: Spontaneous
  Country: US (occurrence: None)
  Receive Date: 20130305
  Receipt Date: 20130305
  Transmission Date: 20140127
  Serious: Yes (Other)
  Sender: FDA-Public Use
  Company Number: 163-21880-12021732

PATIENT
  Age: 85 Year
  Sex: Male
  Weight: 79.38 kg

DRUGS (5)
  1. REVLIMID [Suspect]
     Indication: PLASMA CELL MYELOMA
     Route: 048
     Dates: start: 201201
  2. AMLODIPINE (AMLODIPINE) [Concomitant]
  3. LABETALOL (LABETALOL) [Concomitant]
  4. TRIAMTERENE/HCTZ (DYAZIDE) [Concomitant]
  5. ASA (ACETYLSALICYLIC ACID) [Concomitant]

REACTIONS (1)
  - Rash erythematous [None]
